FAERS Safety Report 4342869-5 (Version None)
Quarter: 2004Q2

REPORT INFORMATION
  Report Type: 
  Country: None (occurrence: None)
  Receive Date: 20040420
  Receipt Date: 20040420
  Transmission Date: 20050107
  Serious: Yes (Hospitalization)
  Sender: FDA-Public Use
  Company Number: None

PATIENT
  Age: 68 Year
  Sex: Female
  Weight: 59.42 kg

DRUGS (4)
  1. TEMODAR [Suspect]
     Indication: ASTROCYTOMA
     Dosage: 120 MG QD ORAL
     Route: 048
     Dates: start: 20030501, end: 20040412
  2. BACTRIM DS [Concomitant]
  3. DILANTIN [Concomitant]
  4. MULTI-VITAMINS [Concomitant]

REACTIONS (2)
  - PNEUMONIA [None]
  - PULMONARY EMBOLISM [None]
